FAERS Safety Report 6667288-8 (Version None)
Quarter: 2010Q2

REPORT INFORMATION
  Report Type: 
  Country: None (occurrence: None)
  Receive Date: 20100401
  Receipt Date: 20100401
  Transmission Date: 20101027
  Serious: No
  Sender: FDA-Public Use
  Company Number: None

PATIENT
  Age: 57 Year
  Sex: Female
  Weight: 76.2043 kg

DRUGS (2)
  1. TAXOTERE [Suspect]
     Indication: BREAST CANCER
     Dosage: EVERY 3 WEEKS IV BOLUS
     Route: 040
     Dates: start: 20071101, end: 20080215
  2. CYTOXAN [Concomitant]

REACTIONS (2)
  - ALOPECIA [None]
  - MADAROSIS [None]
